FAERS Safety Report 5162228-5 (Version None)
Quarter: 2006Q4

REPORT INFORMATION
  Report Type: 
  Country: None (occurrence: None)
  Receive Date: 20061121
  Receipt Date: 20061108
  Transmission Date: 20070319
  Serious: Yes (Life-Threatening, Hospitalization)
  Sender: FDA-Public Use
  Company Number: US-CVT-062113

PATIENT
  Age: 92 Year
  Sex: Female

DRUGS (11)
  1. RANEXA [Suspect]
     Indication: ANGINA PECTORIS
     Dosage: 500 MG BID ORAL
     Route: 048
     Dates: start: 20060929, end: 20061003
  2. LIPITOR [Concomitant]
  3. PLAVIX [Concomitant]
  4. LASIX [Concomitant]
  5. PROCARDIA XL [Concomitant]
  6. POTASSIUM CHLORIDE [Concomitant]
  7. METOPROLOL SUCCINATE [Concomitant]
  8. NITROGLYCERIN [Concomitant]
  9. PROTONIX [Concomitant]
  10. TYLENOL W/ CODEINE [Concomitant]
  11. NITROGLYCERIN [Concomitant]

REACTIONS (4)
  - ACUTE CORONARY SYNDROME [None]
  - CARDIAC FAILURE CONGESTIVE [None]
  - PNEUMONIA [None]
  - PULMONARY OEDEMA [None]
